FAERS Safety Report 14476359 (Version 16)
Quarter: 2019Q2

REPORT INFORMATION
  Report Type: Spontaneous
  Country: US (occurrence: US)
  Receive Date: 20180201
  Receipt Date: 20190513
  Transmission Date: 20190711
  Serious: Yes (Hospitalization, Other)
  Sender: FDA-Public Use
  Company Number: US-SA-2017SA216278

PATIENT
  Age: 60 Year
  Sex: Female

DRUGS (1)
  1. PRALUENT [Suspect]
     Active Substance: ALIROCUMAB
     Indication: INTERVERTEBRAL DISC DISPLACEMENT
     Dosage: 75 MG,QOW
     Route: 058
     Dates: start: 201607

REACTIONS (13)
  - Gastritis [Unknown]
  - Injection site pain [Unknown]
  - Contusion [Unknown]
  - Bronchitis [Unknown]
  - Injection site erythema [Unknown]
  - Gallbladder operation [Unknown]
  - Gastroenteritis [Unknown]
  - Weight decreased [Unknown]
  - Vascular occlusion [Unknown]
  - Chest pain [Unknown]
  - Pneumonia [Unknown]
  - Abdominal pain [Unknown]
  - Malaise [Unknown]

NARRATIVE: CASE EVENT DATE: 2018
